FAERS Safety Report 10097455 (Version 1)
Quarter: 2014Q2

REPORT INFORMATION
  Report Type: Spontaneous
  Country: US (occurrence: US)
  Receive Date: 20140423
  Receipt Date: 20140423
  Transmission Date: 20141212
  Serious: Yes (Death, Other)
  Sender: FDA-Public Use
  Company Number: US-BAXTER-2014BAX019315

PATIENT
  Age: 60 Year
  Sex: Female

DRUGS (4)
  1. VANCOMYCIN INJECTION, USP [Suspect]
     Indication: CLOSTRIDIUM DIFFICILE COLITIS
     Route: 065
  2. GAMMAGARD LIQUID [Suspect]
     Indication: LINEAR IGA DISEASE
     Route: 042
  3. GAMMAGARD LIQUID [Suspect]
     Indication: KOEBNER PHENOMENON
  4. FLAGYL [Suspect]
     Indication: CLOSTRIDIUM DIFFICILE COLITIS
     Route: 065

REACTIONS (2)
  - Linear IgA disease [Recovering/Resolving]
  - Death [Fatal]
